FAERS Safety Report 21285230 (Version 4)
Quarter: 2023Q1

REPORT INFORMATION
  Report Type: Spontaneous
  Country: JP (occurrence: JP)
  Receive Date: 20220902
  Receipt Date: 20230228
  Transmission Date: 20230417
  Serious: Yes (Hospitalization, Other)
  Sender: FDA-Public Use
  Company Number: JP-BRISTOL-MYERS SQUIBB COMPANY-2022-098376

PATIENT
  Age: 86 Year
  Sex: Female
  Weight: 27.6 kg

DRUGS (5)
  1. ORENCIA [Suspect]
     Active Substance: ABATACEPT
     Indication: Rheumatoid vasculitis
     Route: 058
  2. ORENCIA [Suspect]
     Active Substance: ABATACEPT
     Route: 058
     Dates: start: 20220608, end: 20220912
  3. ORENCIA [Suspect]
     Active Substance: ABATACEPT
     Indication: Rheumatoid vasculitis
     Route: 041
     Dates: start: 20220926
  4. LASIX [Concomitant]
     Active Substance: FUROSEMIDE
     Indication: Pulmonary hypertension
     Route: 048
  5. PREDONINE [Concomitant]
     Active Substance: PREDNISOLONE
     Indication: Rheumatoid vasculitis
     Route: 048

REACTIONS (6)
  - Cachexia [Not Recovered/Not Resolved]
  - Tenderness [Unknown]
  - Interstitial lung disease [Recovered/Resolved]
  - Prescribed underdose [Unknown]
  - Rheumatoid arthritis [Unknown]
  - Cardiac failure [Unknown]

NARRATIVE: CASE EVENT DATE: 20220610
